FAERS Safety Report 12815422 (Version 1)
Quarter: 2016Q4

REPORT INFORMATION
  Report Type: Spontaneous
  Country: FR (occurrence: FR)
  Receive Date: 20161005
  Receipt Date: 20161005
  Transmission Date: 20170207
  Serious: Yes (Other)
  Sender: FDA-Public Use
  Company Number: FR-JNJFOC-20160908414

PATIENT
  Age: 70 Year
  Sex: Male
  Weight: 83 kg

DRUGS (4)
  1. INSULIN [Concomitant]
     Active Substance: INSULIN NOS
     Route: 065
  2. OXYNORM [Concomitant]
     Active Substance: OXYCODONE HYDROCHLORIDE
     Route: 065
  3. DARZALEX [Suspect]
     Active Substance: DARATUMUMAB
     Indication: PLASMA CELL MYELOMA
     Dosage: 3 INFUSIONS ON UNSPECIFIED DATES
     Route: 042
     Dates: start: 20160818
  4. DUROGESIC [Concomitant]
     Active Substance: FENTANYL
     Route: 065

REACTIONS (9)
  - Prurigo [Recovered/Resolved]
  - Acne [Recovered/Resolved]
  - Blood phosphorus decreased [Not Recovered/Not Resolved]
  - Skin discolouration [Recovered/Resolved]
  - Infusion related reaction [Recovered/Resolved]
  - Pain in extremity [Recovering/Resolving]
  - Pruritus [Recovered/Resolved]
  - Arthralgia [Not Recovered/Not Resolved]
  - Myalgia [Recovering/Resolving]

NARRATIVE: CASE EVENT DATE: 20160818
